FAERS Safety Report 8283686-3 (Version None)
Quarter: 2012Q2

REPORT INFORMATION
  Report Type: 
  Country: None (occurrence: None)
  Receive Date: 20120413
  Receipt Date: 20120406
  Transmission Date: 20120825
  Serious: Yes (Hospitalization)
  Sender: FDA-Public Use
  Company Number: US-PFIZER INC-2012066627

PATIENT
  Sex: Female
  Weight: 56.689 kg

DRUGS (1)
  1. REVATIO [Suspect]
     Indication: SCLERODERMA
     Dosage: UNK
     Route: 048

REACTIONS (3)
  - LUNG DISORDER [None]
  - INTESTINAL OBSTRUCTION [None]
  - GASTRIC DISORDER [None]
